FAERS Safety Report 4756802-5 (Version None)
Quarter: 2005Q3

REPORT INFORMATION
  Report Type: 
  Country: None (occurrence: None)
  Receive Date: 20050830
  Receipt Date: 20050823
  Transmission Date: 20060218
  Serious: Yes (Other)
  Sender: FDA-Public Use
  Company Number: US-BRISTOL-MYERS SQUIBB COMPANY-13087663

PATIENT
  Age: 50 Year
  Sex: Male
  Weight: 100 kg

DRUGS (8)
  1. ERBITUX [Suspect]
     Indication: COLON CANCER METASTATIC
     Dosage: 900 MG TO BE INFUSED.  RECEIVED LESS THAN 25 MG.
     Route: 042
     Dates: start: 20050822, end: 20050822
  2. BENADRYL [Concomitant]
     Indication: PREMEDICATION
     Dates: start: 20050822, end: 20050822
  3. DECADRON [Concomitant]
     Indication: PREMEDICATION
     Dates: start: 20050822, end: 20050822
  4. TYLENOL [Concomitant]
     Indication: PREMEDICATION
     Dates: start: 20050822, end: 20050822
  5. ZANTAC [Concomitant]
     Indication: PREMEDICATION
     Dates: start: 20050822, end: 20050822
  6. ANZEMET [Concomitant]
  7. CAPECITABINE [Concomitant]
  8. COMPAZINE [Concomitant]

REACTIONS (10)
  - BLOOD PRESSURE DECREASED [None]
  - COLD SWEAT [None]
  - CYANOSIS [None]
  - DYSPNOEA [None]
  - ERYTHEMA [None]
  - FEELING HOT [None]
  - INFUSION RELATED REACTION [None]
  - PRURITUS [None]
  - RASH GENERALISED [None]
  - RETCHING [None]
